FAERS Safety Report 14333587 (Version 18)
Quarter: 2024Q4

REPORT INFORMATION
  Report Type: Report from Study
  Country: JP (occurrence: JP)
  Receive Date: 20171228
  Receipt Date: 20241213
  Transmission Date: 20250115
  Serious: Yes (Death, Hospitalization, Other)
  Sender: ABBVIE
  Company Number: JP-ABBVIE-17K-087-2186265-00

PATIENT
  Age: 71 Year
  Sex: Female

DRUGS (12)
  1. CARBIDOPA\LEVODOPA [Suspect]
     Active Substance: CARBIDOPA\LEVODOPA
     Indication: Parkinson^s disease
     Dosage: EXTRA DOSE ADMINISTERED TWICE ON SAME DAY?MD: 8.8 ML, CD: 5.0 ML/HR ?- 16 HRS, ED: 1.0 ML/UNIT ?- 0
     Route: 050
     Dates: start: 20170907, end: 20170913
  2. CARBIDOPA\LEVODOPA [Suspect]
     Active Substance: CARBIDOPA\LEVODOPA
     Dosage: MD: 11.8 ML, CD: 5 ML/HR A- 16 HRS, ED: 1 ML/UNITA- 0
     Route: 050
     Dates: start: 20170913, end: 20210821
  3. HERBALS [Concomitant]
     Active Substance: HERBALS
     Indication: Product used for unknown indication
     Dates: end: 20210821
  4. DROXIDOPA [Concomitant]
     Active Substance: DROXIDOPA
     Indication: Orthostatic hypotension
     Dosage: TIME INTERVAL: 0.33333333 DAYS: 900 MILLIGRAM
     Route: 048
     Dates: end: 20210821
  5. MIDODRINE HYDROCHLORIDE [Concomitant]
     Active Substance: MIDODRINE HYDROCHLORIDE
     Indication: Orthostatic hypotension
     Dosage: 8 MILLIGRAM
     Dates: end: 20210821
  6. QUETIAPINE FUMARATE [Concomitant]
     Active Substance: QUETIAPINE FUMARATE
     Indication: Product used for unknown indication
     Route: 048
     Dates: end: 20210821
  7. FLUDROCORTISONE ACETATE [Concomitant]
     Active Substance: FLUDROCORTISONE ACETATE
     Indication: Orthostatic hypotension
     Dosage: 0.1 MILLIGRAM
     Route: 048
     Dates: end: 20210821
  8. CARBIDOPA\LEVODOPA [Concomitant]
     Active Substance: CARBIDOPA\LEVODOPA
     Indication: Parkinson^s disease
     Dosage: TIME INTERVAL: 0.16666667 DAYS: 600 MILLIGRAM
     Route: 048
     Dates: start: 20180705, end: 20180709
  9. CARBIDOPA\LEVODOPA [Concomitant]
     Active Substance: CARBIDOPA\LEVODOPA
     Indication: Parkinson^s disease
     Dosage: TIME INTERVAL: 0.16666667 DAYS: 600 MILLIGRAM
     Route: 048
     Dates: start: 20181222, end: 20181228
  10. CARBIDOPA\LEVODOPA [Concomitant]
     Active Substance: CARBIDOPA\LEVODOPA
     Indication: Parkinson^s disease
     Dosage: TIME INTERVAL: 0.16666667 DAYS: 600 MILLIGRAM
     Route: 048
     Dates: start: 20171218, end: 20171221
  11. RIVASTIGMINE [Concomitant]
     Active Substance: RIVASTIGMINE
     Indication: Product used for unknown indication
     Dosage: 9 MILLIGRAM
     Route: 061
     Dates: end: 20210821
  12. CARBIDOPA AND LEVODOPA [Concomitant]
     Active Substance: CARBIDOPA\LEVODOPA
     Indication: Parkinson^s disease
     Route: 048
     Dates: start: 20171218, end: 20171221

REACTIONS (9)
  - Death [Fatal]
  - Deep brain stimulation [Unknown]
  - On and off phenomenon [Recovered/Resolved]
  - Bradykinesia [Recovered/Resolved]
  - Therapeutic product effect incomplete [Unknown]
  - Abdominal pain [Unknown]
  - Dyskinesia [Recovered/Resolved]
  - Bradykinesia [Recovered/Resolved]
  - Dyskinesia [Unknown]

NARRATIVE: CASE EVENT DATE: 20171130
